FAERS Safety Report 4987926-5 (Version None)
Quarter: 2006Q2

REPORT INFORMATION
  Report Type: 
  Country: None (occurrence: None)
  Receive Date: 20060501
  Receipt Date: 20060424
  Transmission Date: 20061013
  Serious: Yes (Hospitalization, Other)
  Sender: FDA-Public Use
  Company Number: US-ABBOTT-06P-163-0331512-00

PATIENT
  Age: 43 Year
  Sex: Female

DRUGS (1)
  1. HUMIRA [Suspect]
     Indication: RHEUMATOID ARTHRITIS
     Route: 058
     Dates: start: 20060101, end: 20060201

REACTIONS (10)
  - ASTHENIA [None]
  - HAEMOPHILUS INFECTION [None]
  - HYPOKALAEMIA [None]
  - JOINT SWELLING [None]
  - LUNG CONSOLIDATION [None]
  - LUNG INFECTION [None]
  - PULMONARY MASS [None]
  - RASH [None]
  - RHEUMATOID ARTHRITIS [None]
  - UPPER RESPIRATORY TRACT INFECTION [None]
